FAERS Safety Report 23799135 (Version 1)
Quarter: 2024Q2

REPORT INFORMATION
  Report Type: Spontaneous
  Country: DE (occurrence: DE)
  Receive Date: 20240430
  Receipt Date: 20240430
  Transmission Date: 20240716
  Serious: Yes (Other)
  Sender: FDA-Public Use
  Company Number: DE-EXELTIS PHARMACEUTICAL HOLDING, S.L.-2404DE03210

PATIENT
  Sex: Female
  Weight: 50 kg

DRUGS (1)
  1. ETHINYL ESTRADIOL\ETONOGESTREL [Suspect]
     Active Substance: ETHINYL ESTRADIOL\ETONOGESTREL
     Indication: Contraception
     Dosage: FOR SOME YEARS
     Dates: start: 202110

REACTIONS (1)
  - Haemangioma of liver [Unknown]
